FAERS Safety Report 14308891 (Version 1)
Quarter: 2017Q4

REPORT INFORMATION
  Report Type: Spontaneous
  Country: US (occurrence: US)
  Receive Date: 20171219
  Receipt Date: 20171219
  Transmission Date: 20180321
  Serious: Yes (Death, Life-Threatening, Hospitalization)
  Sender: FDA-Public Use
  Company Number: None

PATIENT
  Age: 54 Year
  Sex: Male
  Weight: 75.2 kg

DRUGS (2)
  1. DOCETAXEL. [Suspect]
     Active Substance: DOCETAXEL
     Indication: NON-SMALL CELL LUNG CANCER
     Route: 042
     Dates: start: 20120614, end: 20120614
  2. LOPINAVIR/RITONAVIR [Suspect]
     Active Substance: LOPINAVIR\RITONAVIR
     Dosage: 400/100 MG BID PO
     Route: 048
     Dates: start: 20100707, end: 20120630

REACTIONS (12)
  - Drug interaction [None]
  - Contraindicated drug prescribed [None]
  - Pneumonia klebsiella [None]
  - Hypoglycaemia [None]
  - Propofol infusion syndrome [None]
  - General physical health deterioration [None]
  - Leukopenia [None]
  - Febrile neutropenia [None]
  - Sepsis [None]
  - Shock [None]
  - Unresponsive to stimuli [None]
  - Contraindicated product administered [None]

NARRATIVE: CASE EVENT DATE: 20120620
